FAERS Safety Report 10248695 (Version 1)
Quarter: 2014Q2

REPORT INFORMATION
  Report Type: Spontaneous
  Country: US (occurrence: None)
  Receive Date: 20140618
  Receipt Date: 20140618
  Transmission Date: 20141212
  Serious: Yes (Other)
  Sender: FDA-Public Use
  Company Number: None

PATIENT
  Age: 20 Year
  Sex: Male
  Weight: 81.3 kg

DRUGS (1)
  1. GAMUNEX-C [Suspect]
     Indication: INFECTION PROPHYLAXIS
     Dosage: 5/5, 5/9,5/20,5/25,5/28,5/30,6/2
     Route: 042

REACTIONS (3)
  - Haemolytic anaemia [None]
  - Anti A antibody positive [None]
  - Coombs test positive [None]
